FAERS Safety Report 9499087 (Version 4)
Quarter: 2014Q2

REPORT INFORMATION
  Report Type: Spontaneous
  Country: CA (occurrence: CA)
  Receive Date: 20130904
  Receipt Date: 20140513
  Transmission Date: 20141212
  Serious: Yes (Hospitalization, Other)
  Sender: FDA-Public Use
  Company Number: CA-RB-048927-13

PATIENT
  Sex: Female
  Weight: 58 kg

DRUGS (5)
  1. SUBOXONE TABLET [Suspect]
     Dosage: DOSING DETAILS UNKNOWN
     Route: 060
     Dates: end: 20120924
  2. SUBOXONE TABLET [Suspect]
     Indication: DRUG DEPENDENCE
     Dosage: DOSING DETAILS UNKNOWN; 4-8 MG AND 4-10 MG REPORTED, 8 MGS DAILY WHILE BREASTFEEDING
     Route: 060
     Dates: start: 20121010
  3. SUBUTEX [Suspect]
     Indication: DRUG DEPENDENCE
     Route: 060
     Dates: start: 20120925, end: 20121009
  4. PROZAC [Concomitant]
     Indication: DEPRESSION
     Dosage: FURTHER DOSING DETAILS UNKNOWN
     Route: 065
     Dates: start: 2010, end: 201312
  5. NICOTINE [Concomitant]
     Indication: PRODUCT USED FOR UNKNOWN INDICATION
     Dosage: SMOKES 5 CIGARETTES DAILY
     Route: 055

REACTIONS (6)
  - Maternal exposure during pregnancy [Recovered/Resolved]
  - Substance abuse [Unknown]
  - Gastrointestinal disorder [Unknown]
  - Premature labour [Recovered/Resolved]
  - Nausea [Recovered/Resolved]
  - Vomiting [Recovered/Resolved]
